FAERS Safety Report 6929783-3 (Version None)
Quarter: 2010Q3

REPORT INFORMATION
  Report Type: 
  Country: None (occurrence: None)
  Receive Date: 20100818
  Receipt Date: 20100803
  Transmission Date: 20110219
  Serious: Yes (Other)
  Sender: FDA-Public Use
  Company Number: PHHY2010US51369

PATIENT
  Sex: Female
  Weight: 60 kg

DRUGS (1)
  1. RECLAST [Suspect]
     Indication: OSTEOPOROSIS
     Dosage: 5 MG YEARLY
     Dates: start: 20090806

REACTIONS (2)
  - APHTHOUS STOMATITIS [None]
  - SWOLLEN TONGUE [None]
